FAERS Safety Report 10660306 (Version 1)
Quarter: 2014Q4

REPORT INFORMATION
  Report Type: Spontaneous
  Country: US (occurrence: US)
  Receive Date: 20141217
  Receipt Date: 20141217
  Transmission Date: 20150529
  Serious: No
  Sender: FDA-Public Use
  Company Number: US-GLAXOSMITHKLINE-A1083297A

PATIENT

DRUGS (9)
  1. VOTRIENT [Suspect]
     Active Substance: PAZOPANIB HYDROCHLORIDE
     Indication: RENAL CANCER
     Dosage: 400 MG
     Route: 048
     Dates: start: 20140118
  2. JANUVIA [Concomitant]
     Active Substance: SITAGLIPTIN PHOSPHATE
  3. ENALAPRIL [Concomitant]
     Active Substance: ENALAPRIL
  4. GLIPIZIDE. [Concomitant]
     Active Substance: GLIPIZIDE
  5. FLOMAX [Concomitant]
     Active Substance: TAMSULOSIN HYDROCHLORIDE
  6. LASIX [Concomitant]
     Active Substance: FUROSEMIDE
  7. METOPROLOL [Concomitant]
     Active Substance: METOPROLOL
  8. KLOR-CON [Concomitant]
     Active Substance: POTASSIUM CHLORIDE
  9. WARFARIN [Concomitant]
     Active Substance: WARFARIN

REACTIONS (1)
  - Diarrhoea [Unknown]

NARRATIVE: CASE EVENT DATE: 201401
